FAERS Safety Report 5337163-X (Version None)
Quarter: 2007Q2

REPORT INFORMATION
  Report Type: 
  Country: None (occurrence: None)
  Receive Date: 20070529
  Receipt Date: 20070523
  Transmission Date: 20071010
  Serious: Yes (Death)
  Sender: FDA-Public Use
  Company Number: DEWYE709323MAY07

PATIENT
  Sex: Male

DRUGS (2)
  1. TREVILOR [Suspect]
     Dosage: UNKNOWN
  2. LERCANIDIPINE [Concomitant]
     Dosage: UNKNOWN

REACTIONS (1)
  - CARDIAC FAILURE [None]
